FAERS Safety Report 25455577 (Version 2)
Quarter: 2025Q4

REPORT INFORMATION
  Report Type: Spontaneous
  Country: EU (occurrence: None)
  Receive Date: 20250619
  Receipt Date: 20251203
  Transmission Date: 20260117
  Serious: Yes (Hospitalization)
  Sender: UCB
  Company Number: EU-UCBSA-2025035803

PATIENT

DRUGS (5)
  1. LEVETIRACETAM [Suspect]
     Active Substance: LEVETIRACETAM
     Indication: Status epilepticus
     Dosage: UNK
  2. LEVETIRACETAM [Suspect]
     Active Substance: LEVETIRACETAM
     Indication: Off label use
  3. VALPROATE SODIUM [Concomitant]
     Active Substance: VALPROATE SODIUM
     Indication: Product used for unknown indication
  4. CLOBAZAM [Concomitant]
     Active Substance: CLOBAZAM
     Indication: Product used for unknown indication
  5. DIACOMIT [Concomitant]
     Active Substance: STIRIPENTOL
     Indication: Product used for unknown indication

REACTIONS (8)
  - Epilepsy [Unknown]
  - Speech disorder [Unknown]
  - Ataxia [Unknown]
  - Muscle tightness [Unknown]
  - Hypotonia [Unknown]
  - Off label use [Unknown]
  - Drug ineffective [Unknown]
  - Drug resistance [Unknown]
